FAERS Safety Report 9959818 (Version 1)
Quarter: 2014Q1

REPORT INFORMATION
  Report Type: Report from Study
  Country: US (occurrence: US)
  Receive Date: 20140305
  Receipt Date: 20140305
  Transmission Date: 20141002
  Serious: No
  Sender: FDA-Public Use
  Company Number: US-ABBVIE-13P-163-1106006-00

PATIENT
  Age: 20 Year
  Sex: Female
  Weight: 56.75 kg

DRUGS (5)
  1. HUMIRA [Suspect]
     Indication: CROHN^S DISEASE
     Dates: start: 20130515, end: 20130515
  2. HUMIRA [Suspect]
     Dates: start: 20130529, end: 20130529
  3. HUMIRA [Suspect]
     Dates: start: 201306
  4. FERGON [Concomitant]
     Indication: ANAEMIA
  5. BUDESONSIDE [Concomitant]
     Indication: CROHN^S DISEASE

REACTIONS (2)
  - Migraine [Recovered/Resolved]
  - Injection site pain [Not Recovered/Not Resolved]
